FAERS Safety Report 5215720-9 (Version None)
Quarter: 2007Q1

REPORT INFORMATION
  Report Type: 
  Country: None (occurrence: None)
  Receive Date: 20070116
  Receipt Date: 20061228
  Transmission Date: 20070707
  Serious: Yes (Death, Hospitalization)
  Sender: FDA-Public Use
  Company Number: L07-BEL-00005-01

PATIENT
  Age: 84 Year
  Sex: Female

DRUGS (5)
  1. CITALOPRAM [Suspect]
     Indication: DEPRESSION
  2. BROMAZEPAM [Concomitant]
  3. TAMOXIFEN CITRATE [Concomitant]
  4. MEDROXYPROGESTERONE [Concomitant]
  5. FULVESTRANT [Concomitant]

REACTIONS (21)
  - ACUTE PULMONARY OEDEMA [None]
  - AKINESIA [None]
  - ATRIAL FIBRILLATION [None]
  - BLOOD UREA DECREASED [None]
  - BREAST CANCER [None]
  - BUNDLE BRANCH BLOCK LEFT [None]
  - CARDIAC ANEURYSM [None]
  - CARDIAC FAILURE ACUTE [None]
  - CARDIAC MURMUR [None]
  - HYPERKALAEMIA [None]
  - HYPONATRAEMIA [None]
  - HYPOVOLAEMIA [None]
  - INAPPROPRIATE ANTIDIURETIC HORMONE SECRETION [None]
  - INTRACARDIAC THROMBUS [None]
  - MALIGNANT NEOPLASM PROGRESSION [None]
  - MYOCARDIAL INFARCTION [None]
  - NO THERAPEUTIC RESPONSE [None]
  - PLEURAL EFFUSION [None]
  - PULMONARY HYPERTENSION [None]
  - PULMONARY OEDEMA [None]
  - WEIGHT DECREASED [None]
